FAERS Safety Report 19510866 (Version 1)
Quarter: 2021Q3

REPORT INFORMATION
  Report Type: Spontaneous
  Country: US (occurrence: US)
  Receive Date: 20210709
  Receipt Date: 20210709
  Transmission Date: 20211014
  Serious: No
  Sender: FDA-Public Use
  Company Number: US-JNJFOC-20210657174

PATIENT
  Age: 51 Year
  Sex: Female

DRUGS (4)
  1. AVEENO CLEAR COMPLEXION DAILY CLEANSING [Concomitant]
     Active Substance: SALICYLIC ACID
     Indication: PRODUCT USED FOR UNKNOWN INDICATION
     Route: 061
  2. TYLENOL [Suspect]
     Active Substance: ACETAMINOPHEN
     Indication: BURNING SENSATION
     Route: 048
     Dates: start: 202105
  3. TYLENOL [Suspect]
     Active Substance: ACETAMINOPHEN
     Indication: FACIAL PAIN
  4. TYLENOL [Suspect]
     Active Substance: ACETAMINOPHEN
     Indication: RASH ERYTHEMATOUS

REACTIONS (1)
  - Product use in unapproved indication [Unknown]

NARRATIVE: CASE EVENT DATE: 202105
